FAERS Safety Report 15692126 (Version 1)
Quarter: 2018Q4

REPORT INFORMATION
  Report Type: Spontaneous
  Country: IT (occurrence: IT)
  Receive Date: 20181205
  Receipt Date: 20181205
  Transmission Date: 20190205
  Serious: Yes (Hospitalization)
  Sender: FDA-Public Use
  Company Number: PHHY2018IT171897

PATIENT
  Age: 6 Month
  Sex: Male
  Weight: 9 kg

DRUGS (1)
  1. AMOXICILLIN TRIHYDRATE [Suspect]
     Active Substance: AMOXICILLIN
     Indication: EAR INFECTION
     Dosage: 7.5 ML, QD
     Route: 048
     Dates: start: 20181106, end: 20181113

REACTIONS (3)
  - Transaminases increased [Recovering/Resolving]
  - Diarrhoea [Recovering/Resolving]
  - Medication error [Recovering/Resolving]

NARRATIVE: CASE EVENT DATE: 20181106
